FAERS Safety Report 11098473 (Version 1)
Quarter: 2015Q2

REPORT INFORMATION
  Report Type: Report from Study
  Country: DE (occurrence: DE)
  Receive Date: 20150507
  Receipt Date: 20150507
  Transmission Date: 20150821
  Serious: Yes (Hospitalization, Other)
  Sender: FDA-Public Use
  Company Number: DE-GILEAD-2015-0152263

PATIENT
  Age: 52 Year
  Sex: Male
  Weight: 69 kg

DRUGS (1)
  1. LEDIPASVIR/SOFOSBUVIR [Suspect]
     Active Substance: LEDIPASVIR\SOFOSBUVIR
     Indication: CHRONIC HEPATITIS C
     Dosage: 90 MG, QD
     Route: 048
     Dates: start: 20150225

REACTIONS (2)
  - Haemorrhage [Not Recovered/Not Resolved]
  - Synovial rupture [Not Recovered/Not Resolved]

NARRATIVE: CASE EVENT DATE: 20150501
